FAERS Safety Report 13819520 (Version 2)
Quarter: 2018Q1

REPORT INFORMATION
  Report Type: Report from Study
  Country: US (occurrence: US)
  Receive Date: 20170731
  Receipt Date: 20180201
  Transmission Date: 20180508
  Serious: No
  Sender: FDA-Public Use
  Company Number: US-EXELIXIS-CABO-16007867

PATIENT
  Sex: Male

DRUGS (34)
  1. INVOKANA [Concomitant]
     Active Substance: CANAGLIFLOZIN
  2. XGEVA [Concomitant]
     Active Substance: DENOSUMAB
  3. LEVOTHYROXIN [Concomitant]
     Active Substance: LEVOTHYROXINE
  4. LYRICA [Concomitant]
     Active Substance: PREGABALIN
  5. CRESTOR [Concomitant]
     Active Substance: ROSUVASTATIN CALCIUM
  6. TOUJEO [Concomitant]
     Active Substance: INSULIN GLARGINE
  7. IMDUR [Concomitant]
     Active Substance: ISOSORBIDE MONONITRATE
  8. XOPENEX [Concomitant]
     Active Substance: LEVALBUTEROL HYDROCHLORIDE
  9. ZOFRAN [Concomitant]
     Active Substance: ONDANSETRON HYDROCHLORIDE
  10. NOVOLOG [Concomitant]
     Active Substance: INSULIN ASPART
  11. HEPARIN SODIUM PORCINE [Concomitant]
     Active Substance: HEPARIN SODIUM
  12. CABOMETYX [Suspect]
     Active Substance: CABOZANTINIB S-MALATE
     Indication: RENAL CANCER
     Dosage: 60 MG, QD
     Route: 048
     Dates: start: 20160817
  13. ACETAMINOPHEN. [Concomitant]
     Active Substance: ACETAMINOPHEN
  14. EPIPEN [Concomitant]
     Active Substance: EPINEPHRINE
  15. HYDRALAZINE [Concomitant]
     Active Substance: HYDRALAZINE HYDROCHLORIDE
  16. LISINOPRIL. [Concomitant]
     Active Substance: LISINOPRIL
  17. NEOSPORIN [Concomitant]
     Active Substance: BACITRACIN ZINC\NEOMYCIN SULFATE\POLYMYXIN B SULFATE
  18. SYMBICORT [Concomitant]
     Active Substance: BUDESONIDE\FORMOTEROL FUMARATE DIHYDRATE
  19. HYDROMORPHONE [Concomitant]
     Active Substance: HYDROMORPHONE
  20. PREVIDENT [Concomitant]
     Active Substance: SODIUM FLUORIDE
  21. BYDUREON [Concomitant]
     Active Substance: EXENATIDE
  22. FLUTICASONE PROPIONATE. [Concomitant]
     Active Substance: FLUTICASONE PROPIONATE
  23. PIOGLITAZONE. [Concomitant]
     Active Substance: PIOGLITAZONE
  24. TIZANIDINE. [Concomitant]
     Active Substance: TIZANIDINE
  25. VASCEPA [Concomitant]
     Active Substance: ICOSAPENT ETHYL
  26. ATIVAN [Concomitant]
     Active Substance: LORAZEPAM
  27. VITAMIN D2 [Concomitant]
     Active Substance: ERGOCALCIFEROL
  28. TYLENOL [Concomitant]
     Active Substance: ACETAMINOPHEN
  29. CABOMETYX [Suspect]
     Active Substance: CABOZANTINIB S-MALATE
     Dosage: 60 MG, 4 DAYS ON AND 3 DAYS OFF
     Route: 048
  30. PERIDEX [Concomitant]
     Active Substance: CHLORHEXIDINE GLUCONATE
  31. CLOPIDOGREL BISULFATE. [Concomitant]
     Active Substance: CLOPIDOGREL BISULFATE
  32. GLIMEPIRIDE. [Concomitant]
     Active Substance: GLIMEPIRIDE
  33. LINZESS [Concomitant]
     Active Substance: LINACLOTIDE
  34. LOPRESSOR [Concomitant]
     Active Substance: METOPROLOL TARTRATE

REACTIONS (2)
  - Diarrhoea [Not Recovered/Not Resolved]
  - Hand-foot-and-mouth disease [Not Recovered/Not Resolved]
